FAERS Safety Report 24166633 (Version 1)
Quarter: 2024Q3

REPORT INFORMATION
  Report Type: Spontaneous
  Country: GB (occurrence: GB)
  Receive Date: 20240802
  Receipt Date: 20240802
  Transmission Date: 20241017
  Serious: Yes (Other)
  Sender: RANBAXY
  Company Number: GB-MHRA-MED-202406271047536950-MNTJK

PATIENT
  Age: 21 Year
  Sex: Female
  Weight: 52 kg

DRUGS (3)
  1. CIPROFLOXACIN [Suspect]
     Active Substance: CIPROFLOXACIN
     Indication: Gastroenteritis bacterial
     Dosage: TWICE A DAY (UNSURE OF DOSE)
     Route: 065
     Dates: start: 20240601, end: 20240603
  2. MESALAMINE [Concomitant]
     Active Substance: MESALAMINE
     Indication: Colitis
     Dosage: UNK
     Route: 065
     Dates: start: 20230901
  3. PENTASA [Concomitant]
     Active Substance: MESALAMINE
     Indication: Colitis
     Dosage: UNK
     Route: 065
     Dates: start: 20240515, end: 20240531

REACTIONS (2)
  - Medication error [Unknown]
  - Psychotic disorder [Recovered/Resolved]

NARRATIVE: CASE EVENT DATE: 20240603
